FAERS Safety Report 11474974 (Version 1)
Quarter: 2015Q3

REPORT INFORMATION
  Report Type: Report from Study
  Country: IN (occurrence: IN)
  Receive Date: 20150908
  Receipt Date: 20150908
  Transmission Date: 20151125
  Serious: Yes (Death, Hospitalization)
  Sender: FDA-Public Use
  Company Number: IN-BAXTER-2014BAX011507

PATIENT
  Age: 45 Year
  Sex: Male

DRUGS (1)
  1. DIANEAL PD-2 PERITONEAL DIALYSIS SOLUTION WITH DEXTROSE [Suspect]
     Active Substance: CALCIUM CHLORIDE\DEXTROSE\MAGNESIUM CHLORIDE\SODIUM CHLORIDE\SODIUM LACTATE
     Indication: PERITONEAL DIALYSIS
     Dosage: 4 BAGS (2 LITERS EACH)
     Route: 033
     Dates: start: 20130319

REACTIONS (4)
  - Cardiac failure congestive [Fatal]
  - Dyspnoea [Unknown]
  - Swelling [Unknown]
  - Myocardial infarction [Fatal]

NARRATIVE: CASE EVENT DATE: 201306
